FAERS Safety Report 11785914 (Version 1)
Quarter: 2015Q4

REPORT INFORMATION
  Report Type: Spontaneous
  Country: US (occurrence: None)
  Receive Date: 20151125
  Receipt Date: 20151125
  Transmission Date: 20160305
  Serious: No
  Sender: FDA-Public Use
  Company Number: None

PATIENT
  Age: 39 Year
  Sex: Female

DRUGS (8)
  1. AQUADEKS [Concomitant]
  2. AZITHROMYCIN [Concomitant]
     Active Substance: AZITHROMYCIN ANHYDROUS
  3. NOVOLOG [Concomitant]
     Active Substance: INSULIN ASPART
  4. SPIRIVA [Concomitant]
     Active Substance: TIOTROPIUM BROMIDE MONOHYDRATE
  5. VALACYCLOVIR 500MG MYLAN [Suspect]
     Active Substance: VALACYCLOVIR HYDROCHLORIDE
     Indication: CYSTIC FIBROSIS
     Route: 048
     Dates: start: 20131218
  6. ADVAIR HFA [Concomitant]
     Active Substance: FLUTICASONE PROPIONATE\SALMETEROL XINAFOATE
  7. OMEPRAZOLE. [Concomitant]
     Active Substance: OMEPRAZOLE
  8. CREON [Concomitant]
     Active Substance: PANCRELIPASE AMYLASE\PANCRELIPASE LIPASE\PANCRELIPASE PROTEASE

REACTIONS (2)
  - Condition aggravated [None]
  - Hospitalisation [None]

NARRATIVE: CASE EVENT DATE: 20151116
